FAERS Safety Report 17649537 (Version 1)
Quarter: 2020Q3

REPORT INFORMATION
  Report Type: Spontaneous
  Country: US (occurrence: US)
  Receive Date: 20200409
  Receipt Date: 20200409
  Transmission Date: 20201105
  Serious: Yes (Other)
  Sender: FDA-Public Use
  Company Number: US-FRESENIUS KABI-FK202003522

PATIENT
  Age: 70 Year
  Sex: Female

DRUGS (21)
  1. DOCETAXEL. [Suspect]
     Active Substance: DOCETAXEL
     Indication: BREAST CANCER
  2. FULVESTRANT. [Suspect]
     Active Substance: FULVESTRANT
     Indication: BREAST CANCER
  3. PACLITAXEL ALBUMIN [Suspect]
     Active Substance: PACLITAXEL
     Indication: BREAST CANCER
  4. METOPROLOL. [Concomitant]
     Active Substance: METOPROLOL
     Indication: PRODUCT USED FOR UNKNOWN INDICATION
  5. NO DRUG NAME [Suspect]
     Active Substance: UNSPECIFIED INGREDIENT
     Indication: BREAST CANCER
     Dosage: FIBROBLAST GROWTH FACTOR, MELK (MATERNAL EMBRYONIC LEUCINE KINASE), AND ALK (ANAPLASTIC LYMPHOMA KIN
  6. FULVESTRANT. [Suspect]
     Active Substance: FULVESTRANT
     Indication: METASTASIS
  7. PACLITAXEL ALBUMIN [Suspect]
     Active Substance: PACLITAXEL
     Indication: METASTASIS
  8. LAPATINIB [Suspect]
     Active Substance: LAPATINIB
     Indication: METASTASIS
  9. DOXORUBICIN (MANUFACTURER UNKNOWN) [Suspect]
     Active Substance: DOXORUBICIN
     Indication: BREAST CANCER
     Route: 065
  10. DCR?M1711 SODIUM. [Suspect]
     Active Substance: DCR-M1711 SODIUM
     Indication: METASTASIS
  11. DCR?M1711 SODIUM. [Suspect]
     Active Substance: DCR-M1711 SODIUM
     Indication: BREAST CANCER
     Dosage: DCR?MYC
  12. NO DRUG NAME [Suspect]
     Active Substance: UNSPECIFIED INGREDIENT
     Indication: METASTASIS
  13. PANTOPRAZOLE [Concomitant]
     Active Substance: PANTOPRAZOLE
     Indication: PRODUCT USED FOR UNKNOWN INDICATION
  14. DOCETAXEL. [Suspect]
     Active Substance: DOCETAXEL
     Indication: METASTASIS
  15. VINORELBINE [Suspect]
     Active Substance: VINORELBINE TARTRATE
     Indication: BREAST CANCER
  16. LEVOTHYROXINE. [Concomitant]
     Active Substance: LEVOTHYROXINE
     Indication: PRODUCT USED FOR UNKNOWN INDICATION
  17. AMLODIPINE [Concomitant]
     Active Substance: AMLODIPINE BESYLATE
     Indication: PRODUCT USED FOR UNKNOWN INDICATION
  18. DOXORUBICIN (MANUFACTURER UNKNOWN) [Suspect]
     Active Substance: DOXORUBICIN
     Indication: METASTASIS
  19. VINORELBINE [Suspect]
     Active Substance: VINORELBINE TARTRATE
     Indication: METASTASIS
  20. LAPATINIB [Suspect]
     Active Substance: LAPATINIB
     Indication: BREAST CANCER
  21. ALLOPURINOL. [Concomitant]
     Active Substance: ALLOPURINOL
     Indication: PRODUCT USED FOR UNKNOWN INDICATION

REACTIONS (1)
  - Thrombotic microangiopathy [Unknown]
